FAERS Safety Report 8363823-2 (Version None)
Quarter: 2012Q2

REPORT INFORMATION
  Report Type: 
  Country: None (occurrence: None)
  Receive Date: 20120516
  Receipt Date: 20120417
  Transmission Date: 20120825
  Serious: No
  Sender: FDA-Public Use
  Company Number: US-ASTRAZENECA-2012SE25381

PATIENT
  Age: 81 Year
  Sex: Female

DRUGS (1)
  1. CRESTOR [Suspect]
     Route: 048

REACTIONS (3)
  - MUSCULOSKELETAL DISCOMFORT [None]
  - LIMB DISCOMFORT [None]
  - BACK DISORDER [None]
